FAERS Safety Report 16548749 (Version 1)
Quarter: 2019Q3

REPORT INFORMATION
  Report Type: Spontaneous
  Country: DE (occurrence: DE)
  Receive Date: 20190709
  Receipt Date: 20190709
  Transmission Date: 20191004
  Serious: Yes (Hospitalization, Other)
  Sender: FDA-Public Use
  Company Number: DE-JNJFOC-20190709642

PATIENT
  Sex: Male
  Weight: 81 kg

DRUGS (8)
  1. DECORTIN [Suspect]
     Active Substance: PREDNISONE
     Indication: COLITIS ULCERATIVE
     Route: 065
  2. ETORICOXIB. [Concomitant]
     Active Substance: ETORICOXIB
  3. MEZAVANT [Suspect]
     Active Substance: MESALAMINE
     Indication: COLITIS ULCERATIVE
     Route: 065
  4. BISOPROLOL [Concomitant]
     Active Substance: BISOPROLOL
     Dosage: ONE AND A HALF TABLET EVERY DAY
  5. TAMSULOSIN [Concomitant]
     Active Substance: TAMSULOSIN
  6. REMICADE [Suspect]
     Active Substance: INFLIXIMAB
     Indication: COLITIS ULCERATIVE
     Route: 042
     Dates: start: 20181112, end: 20190103
  7. AZATHIOPRIN [Suspect]
     Active Substance: AZATHIOPRINE
     Indication: COLITIS ULCERATIVE
     Route: 065
  8. RAMIPRIL. [Concomitant]
     Active Substance: RAMIPRIL

REACTIONS (3)
  - Intervertebral disc operation [Recovered/Resolved]
  - Muscular weakness [Unknown]
  - Pain in extremity [Unknown]

NARRATIVE: CASE EVENT DATE: 20181120
